FAERS Safety Report 21098360 (Version 1)
Quarter: 2022Q3

REPORT INFORMATION
  Report Type: Spontaneous
  Country: US (occurrence: None)
  Receive Date: 20220718
  Receipt Date: 20220718
  Transmission Date: 20221027
  Serious: Yes (Hospitalization)
  Sender: FDA-Public Use
  Company Number: None

PATIENT
  Age: 87 Year
  Sex: Male
  Weight: 64.8 kg

DRUGS (2)
  1. ENZALUTAMIDE [Suspect]
     Active Substance: ENZALUTAMIDE
     Indication: Prostate cancer
     Dosage: FREQUENCY : DAILY;?
     Route: 048
     Dates: start: 20160916
  2. ENZALUTAMIDE [Suspect]
     Active Substance: ENZALUTAMIDE
     Dosage: FREQUENCY : DAILY;?
     Route: 048
     Dates: start: 20160916

REACTIONS (9)
  - Constipation [None]
  - Urosepsis [None]
  - Mental status changes [None]
  - Frequent bowel movements [None]
  - Proctalgia [None]
  - Rectal spasm [None]
  - Defaecation urgency [None]
  - Faecaloma [None]
  - Gastrointestinal disorder [None]

NARRATIVE: CASE EVENT DATE: 20220716
